FAERS Safety Report 12173981 (Version 1)
Quarter: 2016Q1

REPORT INFORMATION
  Report Type: Spontaneous
  Country: US (occurrence: US)
  Receive Date: 20160314
  Receipt Date: 20160314
  Transmission Date: 20160526
  Serious: No
  Sender: FDA-Public Use
  Company Number: US-TEVA-621277USA

PATIENT
  Age: 72 Year
  Sex: Female

DRUGS (1)
  1. ENOXAPARIN [Suspect]
     Active Substance: ENOXAPARIN
     Route: 065

REACTIONS (3)
  - Diarrhoea [Unknown]
  - Insomnia [Unknown]
  - Arthralgia [Unknown]
